FAERS Safety Report 6298568-6 (Version None)
Quarter: 2009Q3

REPORT INFORMATION
  Report Type: 
  Country: None (occurrence: None)
  Receive Date: 20090803
  Receipt Date: 20090728
  Transmission Date: 20100115
  Serious: Yes (Other)
  Sender: FDA-Public Use
  Company Number: CHPA2009US15807

PATIENT
  Age: 57 Year
  Sex: Male
  Weight: 112.9 kg

DRUGS (1)
  1. NICOTINE [Suspect]
     Indication: SMOKING CESSATION THERAPY
     Dosage: 21 MG, QD, TRANSDERMAL
     Route: 062
     Dates: start: 20070101, end: 20070101

REACTIONS (6)
  - APPLICATION SITE BLEEDING [None]
  - APPLICATION SITE IRRITATION [None]
  - APPLICATION SITE SCAB [None]
  - PRODUCT QUALITY ISSUE [None]
  - SKIN CANCER [None]
  - SKIN INJURY [None]
